FAERS Safety Report 9575836 (Version 1)
Quarter: 2013Q4

REPORT INFORMATION
  Report Type: Spontaneous
  Country: US (occurrence: US)
  Receive Date: 20131001
  Receipt Date: 20131001
  Transmission Date: 20140711
  Serious: No
  Sender: FDA-Public Use
  Company Number: US-AMGEN-USASP2013000051

PATIENT
  Sex: Male
  Weight: 88.44 kg

DRUGS (7)
  1. ENBREL [Suspect]
     Indication: PRODUCT USED FOR UNKNOWN INDICATION
     Dosage: 25 MG, QWK
     Route: 058
  2. RAMIPRIL [Concomitant]
     Dosage: 1.25 MG, UNK
  3. LOVASTATIN [Concomitant]
     Dosage: 10 MG, UNK
  4. ATENOLOL [Concomitant]
     Dosage: 25 MG, UNK
  5. ASPIRIN LOW [Concomitant]
     Dosage: 81 MG EC, UNK
  6. TACLONEX [Concomitant]
     Dosage: UNK
  7. HYDROCHLOROTH [Concomitant]
     Dosage: 25 MG, UNK

REACTIONS (1)
  - Nasopharyngitis [Unknown]
